FAERS Safety Report 25707491 (Version 1)
Quarter: 2025Q3

REPORT INFORMATION
  Report Type: Spontaneous
  Country: US (occurrence: US)
  Receive Date: 20250820
  Receipt Date: 20250820
  Transmission Date: 20251020
  Serious: No
  Sender: ASTELLAS
  Company Number: US-ASTELLAS-2025-AER-019599

PATIENT
  Age: 78 Year
  Sex: Male

DRUGS (2)
  1. XTANDI [Suspect]
     Active Substance: ENZALUTAMIDE
     Indication: Product used for unknown indication
     Route: 050
  2. XTANDI [Suspect]
     Active Substance: ENZALUTAMIDE
     Dosage: 80 MG (TWO TABLETS) EVERY HOUR (TWICE A DAY)
     Route: 050

REACTIONS (4)
  - Weight decreased [Unknown]
  - Nausea [Unknown]
  - Decreased appetite [Recovered/Resolved]
  - Off label use [Unknown]
